FAERS Safety Report 5018076-X (Version None)
Quarter: 2006Q2

REPORT INFORMATION
  Report Type: 
  Country: None (occurrence: None)
  Receive Date: 20060530
  Receipt Date: 20060516
  Transmission Date: 20061013
  Serious: Yes (Hospitalization, Other)
  Sender: FDA-Public Use
  Company Number: 2004079254

PATIENT
  Age: 28 Year
  Sex: Female

DRUGS (32)
  1. GEODON [Suspect]
     Indication: AFFECTIVE DISORDER
     Dosage: 240 MG (120 MG, 2 IN 1 D), ORAL
     Route: 048
     Dates: start: 20010430, end: 20031012
  2. FLUCONAZOLE [Suspect]
     Indication: CANDIDIASIS
     Dosage: 100 MG (1 IN 1 D),ORAL
     Route: 048
     Dates: start: 20031001, end: 20031013
  3. LITHOBID [Suspect]
     Indication: SELF INJURIOUS BEHAVIOUR
     Dosage: 1200 MG (600 MG, 2 IN 1 D), ORAL
     Route: 048
     Dates: start: 20010101
  4. TOPIRAMATE [Suspect]
     Indication: ILL-DEFINED DISORDER
     Dosage: UNK (100 MG, 1 IN 1 D), ORAL
     Route: 048
     Dates: start: 20010101
  5. CLARITIN [Suspect]
     Indication: ILL-DEFINED DISORDER
     Dosage: UNK ( 10 MG, 1 IN 1 D), ORAL
     Route: 048
     Dates: start: 20010101
  6. CIPROFLOXACIN [Concomitant]
  7. LEXAPRO [Concomitant]
  8. PREDNISONE TAB [Concomitant]
  9. VANCOMYCIN [Concomitant]
  10. ACETAMINOPHEN [Concomitant]
  11. HEPARIN [Concomitant]
  12. EXCEDRIN (MIGRAINE) [Concomitant]
  13. ASPIRIN [Concomitant]
  14. PROTONIX [Concomitant]
  15. PREVACID [Concomitant]
  16. ALL OTHER THERAPEUTIC PRODUCTS (ALL OTHER THERAPEUTIC PRODUCTS) [Concomitant]
  17. KLONOPIN [Concomitant]
  18. ZYPREXA [Concomitant]
  19. KEPPRA [Concomitant]
  20. TRAZODONE HCL [Concomitant]
  21. METOPROLOL SUCCINATE [Concomitant]
  22. SYNTHROID [Concomitant]
  23. DIFLUCAN [Concomitant]
  24. LACTAID (TILACTASE) [Concomitant]
  25. PROZAC [Concomitant]
  26. FERROUS SULFATE TAB [Concomitant]
  27. CLONAZEPAM [Concomitant]
  28. SIMETHICONE (SIMETHICONE) [Concomitant]
  29. NALTREXONE HCL [Concomitant]
  30. ABILIFY [Concomitant]
  31. PLAQUENIL [Concomitant]
  32. FIORICET [Concomitant]

REACTIONS (42)
  - ACTIVATED PARTIAL THROMBOPLASTIN TIME PROLONGED [None]
  - AGGRESSION [None]
  - AGITATION [None]
  - ANAEMIA [None]
  - ANXIETY [None]
  - BACTERIAL INFECTION [None]
  - BLOOD BICARBONATE DECREASED [None]
  - BLOOD BILIRUBIN INCREASED [None]
  - BLOOD MAGNESIUM DECREASED [None]
  - BLOOD POTASSIUM DECREASED [None]
  - BLOOD SODIUM DECREASED [None]
  - CANDIDURIA [None]
  - CARDIAC MURMUR [None]
  - CENTRAL LINE INFECTION [None]
  - CHEST PAIN [None]
  - CHOLELITHIASIS [None]
  - DELIRIUM [None]
  - DIALYSIS [None]
  - DRUG INEFFECTIVE [None]
  - ECCHYMOSIS [None]
  - ELECTROCARDIOGRAM T WAVE ABNORMAL [None]
  - GALLOP RHYTHM PRESENT [None]
  - HEPARIN-INDUCED THROMBOCYTOPENIA [None]
  - HYPOKALAEMIA [None]
  - HYPOTENSION [None]
  - INTERNATIONAL NORMALISED RATIO DECREASED [None]
  - LUPUS NEPHRITIS [None]
  - MIGRAINE [None]
  - ORAL INTAKE REDUCED [None]
  - PAIN [None]
  - PROTHROMBIN TIME PROLONGED [None]
  - RENAL FAILURE [None]
  - SOMNOLENCE [None]
  - SPEECH DISORDER [None]
  - SYSTEMIC LUPUS ERYTHEMATOSUS [None]
  - THERAPEUTIC AGENT TOXICITY [None]
  - TORSADE DE POINTES [None]
  - TREMOR [None]
  - TRICUSPID VALVE INCOMPETENCE [None]
  - URINARY TRACT INFECTION [None]
  - URINARY TRACT INFECTION FUNGAL [None]
  - URINE KETONE BODY PRESENT [None]
